FAERS Safety Report 21592276 (Version 1)
Quarter: 2022Q4

REPORT INFORMATION
  Report Type: Spontaneous
  Country: US (occurrence: None)
  Receive Date: 20221113
  Receipt Date: 20221113
  Transmission Date: 20230113
  Serious: Yes (Disabling)
  Sender: FDA-Public Use
  Company Number: None

PATIENT
  Age: 68 Year
  Sex: Female
  Weight: 72 kg

DRUGS (6)
  1. TRIAMCINOLONE ACETONIDE [Suspect]
     Active Substance: TRIAMCINOLONE ACETONIDE
     Indication: Rash
     Dosage: FREQUENCY : TWICE A DAY;?
     Route: 061
     Dates: start: 20221011, end: 20221028
  2. TRIAMCINOLONE ACETONIDE [Suspect]
     Active Substance: TRIAMCINOLONE ACETONIDE
     Indication: Arthropod bite
  3. MODERNA COVID-19 VACCINE [Suspect]
     Active Substance: ELASOMERAN
  4. INFLUENZA VIRUS VACCINE [Suspect]
     Active Substance: INFLUENZA VIRUS VACCINE
  5. IBUPROFEN [Concomitant]
     Active Substance: IBUPROFEN
  6. TYLENOL [Concomitant]
     Active Substance: ACETAMINOPHEN

REACTIONS (3)
  - Rash erythematous [None]
  - Rash pruritic [None]
  - Paraesthesia [None]

NARRATIVE: CASE EVENT DATE: 20221103
